FAERS Safety Report 4728832-0 (Version None)
Quarter: 2005Q3

REPORT INFORMATION
  Report Type: 
  Country: None (occurrence: None)
  Receive Date: 20050729
  Receipt Date: 20050201
  Transmission Date: 20060218
  Serious: Yes (Hospitalization)
  Sender: FDA-Public Use
  Company Number: US-ROCHE-394179

PATIENT
  Age: 45 Year
  Sex: Female

DRUGS (6)
  1. PEG-INTERFERON ALFA 2A (RO 25-8310) [Suspect]
     Route: 058
     Dates: start: 20041116, end: 20050114
  2. PEG-INTERFERON ALFA 2A (RO 25-8310) [Suspect]
     Route: 058
     Dates: start: 20050128, end: 20050128
  3. PEG-INTERFERON ALFA 2A (RO 25-8310) [Suspect]
     Route: 058
     Dates: start: 20050204, end: 20050204
  4. PEG-INTERFERON ALFA 2A (RO 25-8310) [Suspect]
     Route: 058
     Dates: start: 20050218
  5. RIBAVIRIN [Suspect]
     Route: 048
     Dates: start: 20041116, end: 20050118
  6. RIBAVIRIN [Suspect]
     Route: 048
     Dates: start: 20050128

REACTIONS (2)
  - CLOSTRIDIUM DIFFICILE TOXIN TEST POSITIVE [None]
  - GASTROENTERITIS [None]
